FAERS Safety Report 14578509 (Version 1)
Quarter: 2018Q1

REPORT INFORMATION
  Report Type: Spontaneous
  Country: US (occurrence: US)
  Receive Date: 20180226
  Receipt Date: 20180226
  Transmission Date: 20180509
  Serious: No
  Sender: FDA-Public Use
  Company Number: None

PATIENT
  Age: 52 Year
  Sex: Female
  Weight: 56.25 kg

DRUGS (2)
  1. OXYCODONE 7.5MG/325MG [Suspect]
     Active Substance: OXYCODONE
     Indication: INTERVERTEBRAL DISC PROTRUSION
     Dates: start: 20180128, end: 20180226
  2. VITAMINS [Concomitant]
     Active Substance: VITAMINS

REACTIONS (5)
  - Product substitution issue [None]
  - Nausea [None]
  - Product physical consistency issue [None]
  - Headache [None]
  - Pain [None]

NARRATIVE: CASE EVENT DATE: 20180130
